FAERS Safety Report 6420899-7 (Version None)
Quarter: 2009Q4

REPORT INFORMATION
  Report Type: 
  Country: None (occurrence: None)
  Receive Date: 20091030
  Receipt Date: 20091022
  Transmission Date: 20100525
  Serious: Yes (Hospitalization, Other)
  Sender: FDA-Public Use
  Company Number: US-AMGEN-QUU319862

PATIENT
  Sex: Female
  Weight: 59.5 kg

DRUGS (7)
  1. ENBREL [Suspect]
     Indication: RHEUMATOID ARTHRITIS
     Route: 058
     Dates: start: 20080515
  2. METHOTREXATE [Suspect]
     Indication: DRUG USE FOR UNKNOWN INDICATION
     Dates: start: 20080701
  3. METHYLPREDNISOLONE 4MG TAB [Concomitant]
     Route: 048
  4. NORCO [Concomitant]
     Route: 048
     Dates: start: 20080506, end: 20080801
  5. FOLIC ACID [Concomitant]
     Route: 048
  6. FLEXERIL [Concomitant]
     Route: 048
  7. HYDROCODONE [Concomitant]

REACTIONS (10)
  - ABDOMINAL DISCOMFORT [None]
  - ABORTION INCOMPLETE [None]
  - CONTUSION [None]
  - DYSPNOEA [None]
  - FATIGUE [None]
  - HEADACHE [None]
  - INSOMNIA [None]
  - RASH ERYTHEMATOUS [None]
  - RHEUMATOID ARTHRITIS [None]
  - VAGINAL HAEMORRHAGE [None]
